FAERS Safety Report 9910867 (Version 1)
Quarter: 2014Q1

REPORT INFORMATION
  Report Type: Spontaneous
  Country: JP (occurrence: JP)
  Receive Date: 20140219
  Receipt Date: 20140219
  Transmission Date: 20141002
  Serious: Yes (Hospitalization)
  Sender: FDA-Public Use
  Company Number: JP-PFIZER INC-2014043398

PATIENT
  Age: 84 Year
  Sex: Male

DRUGS (7)
  1. LIPITOR [Suspect]
     Indication: HYPERCHOLESTEROLAEMIA
     Dosage: 5 MG, DAILY
     Route: 048
  2. ASPENON [Suspect]
     Dosage: UNK
     Route: 065
  3. SALOBEL [Suspect]
     Dosage: UNK
     Route: 048
  4. PARIET [Concomitant]
     Dosage: UNK
  5. LENDORMIN [Concomitant]
     Dosage: UNK
  6. BACTRAMIN [Concomitant]
     Dosage: UNK
  7. SULFAMETHOXAZOLE [Concomitant]
     Dosage: UNK

REACTIONS (1)
  - Interstitial lung disease [Not Recovered/Not Resolved]
